FAERS Safety Report 4643816-9 (Version None)
Quarter: 2005Q2

REPORT INFORMATION
  Report Type: 
  Country: None (occurrence: None)
  Receive Date: 20050422
  Receipt Date: 20050422
  Transmission Date: 20051028
  Serious: Yes (Other)
  Sender: FDA-Public Use
  Company Number: None

PATIENT
  Age: 73 Year
  Sex: Male
  Weight: 100.7 kg

DRUGS (4)
  1. CILOSTAZOL [Suspect]
  2. LISINOPRIL [Concomitant]
  3. FELODIPINE [Concomitant]
  4. SIMVASTATIN [Concomitant]

REACTIONS (1)
  - ABDOMINAL DISCOMFORT [None]
